FAERS Safety Report 15293753 (Version 1)
Quarter: 2018Q3

REPORT INFORMATION
  Report Type: Spontaneous
  Country: GB (occurrence: GB)
  Receive Date: 20180820
  Receipt Date: 20180820
  Transmission Date: 20181010
  Serious: Yes (Disabling)
  Sender: FDA-Public Use
  Company Number: GB-TEVA-2018-GB-944537

PATIENT
  Sex: Male

DRUGS (1)
  1. ROSUVASTATIN. [Suspect]
     Active Substance: ROSUVASTATIN
     Route: 065

REACTIONS (25)
  - Arthralgia [Unknown]
  - Dysphagia [Unknown]
  - Burning sensation [Unknown]
  - Constipation [Unknown]
  - Hypotonia [Unknown]
  - Oropharyngeal pain [Unknown]
  - Tremor [Unknown]
  - Musculoskeletal stiffness [Unknown]
  - Hypoaesthesia [Unknown]
  - Muscle spasms [Unknown]
  - Muscle contractions involuntary [Unknown]
  - Abnormal loss of weight [Recovering/Resolving]
  - Muscle twitching [Unknown]
  - Fatigue [Unknown]
  - Restless legs syndrome [Unknown]
  - Formication [Unknown]
  - Limb discomfort [Unknown]
  - Hyperaesthesia [Unknown]
  - Condition aggravated [Unknown]
  - Back pain [Unknown]
  - Speech disorder [Unknown]
  - Paraesthesia [Unknown]
  - Pain in extremity [Unknown]
  - Dyskinesia [Unknown]
  - Myalgia [Unknown]
